FAERS Safety Report 12831688 (Version 2)
Quarter: 2016Q4

REPORT INFORMATION
  Report Type: Spontaneous
  Country: FR (occurrence: FR)
  Receive Date: 20161010
  Receipt Date: 20161228
  Transmission Date: 20170207
  Serious: Yes (Hospitalization)
  Sender: FDA-Public Use
  Company Number: FR-ROCHE-1839186

PATIENT
  Age: 57 Year
  Sex: Female

DRUGS (4)
  1. CELLCEPT [Suspect]
     Active Substance: MYCOPHENOLATE MOFETIL\MYCOPHENOLATE MOFETIL HYDROCHLORIDE
     Indication: BIRDSHOT CHORIORETINOPATHY
     Route: 048
     Dates: start: 201507, end: 201606
  2. CELLCEPT [Interacting]
     Active Substance: MYCOPHENOLATE MOFETIL\MYCOPHENOLATE MOFETIL HYDROCHLORIDE
     Route: 048
     Dates: start: 201606, end: 201609
  3. IMUREL [Concomitant]
     Active Substance: AZATHIOPRINE SODIUM
     Route: 065
     Dates: end: 201507
  4. CORTANCYL [Interacting]
     Active Substance: PREDNISONE
     Indication: BIRDSHOT CHORIORETINOPATHY
     Route: 048
     Dates: start: 2015, end: 201609

REACTIONS (4)
  - Cytomegalovirus colitis [Recovered/Resolved]
  - Histiocytosis haematophagic [Recovered/Resolved]
  - Drug interaction [Unknown]
  - Off label use [Unknown]

NARRATIVE: CASE EVENT DATE: 201609
